FAERS Safety Report 21619103 (Version 3)
Quarter: 2023Q1

REPORT INFORMATION
  Report Type: Report from Study
  Country: CA (occurrence: CA)
  Receive Date: 20221120
  Receipt Date: 20230310
  Transmission Date: 20230417
  Serious: Yes (Other)
  Sender: FDA-Public Use
  Company Number: CA-JNJFOC-20221137560

PATIENT
  Age: 5 Decade
  Sex: Female

DRUGS (1)
  1. REMICADE [Suspect]
     Active Substance: INFLIXIMAB
     Indication: Colitis ulcerative
     Route: 041
     Dates: start: 20181108

REACTIONS (2)
  - Skin cancer [Unknown]
  - Hidradenitis [Unknown]

NARRATIVE: CASE EVENT DATE: 20220101
